FAERS Safety Report 4996503-1 (Version None)
Quarter: 2006Q2

REPORT INFORMATION
  Report Type: 
  Country: None (occurrence: None)
  Receive Date: 20060509
  Receipt Date: 20060307
  Transmission Date: 20061013
  Serious: Yes (Other)
  Sender: FDA-Public Use
  Company Number: PHEH2006US03078

PATIENT
  Age: 66 Year
  Sex: Female

DRUGS (10)
  1. EXJADE [Suspect]
     Indication: BLOOD IRON INCREASED
     Dosage: 1000 MG, QD
     Route: 048
     Dates: start: 20060101
  2. SYNTHROID [Concomitant]
     Dosage: 0.125 MG, QD
  3. LOPRESSOR [Concomitant]
     Dosage: 12.5 MG, QD
  4. LASIX [Concomitant]
     Dosage: 10 MG/L, QD
  5. CELEBREX [Concomitant]
     Dosage: 200 MG, QD
  6. VALIUM [Concomitant]
     Dosage: 2.5 MG, PRN TID
  7. ZOLOFT [Concomitant]
     Dosage: 50 MG, QD
  8. VITAMINS NOS [Concomitant]
     Dosage: UNK, QD
  9. POTASSIUM [Concomitant]
  10. INVESTIGATIONAL DRUG [Concomitant]

REACTIONS (6)
  - FATIGUE [None]
  - HAEMOGLOBIN DECREASED [None]
  - NAUSEA [None]
  - NEUTROPENIA [None]
  - PANCYTOPENIA [None]
  - PLATELET COUNT DECREASED [None]
